FAERS Safety Report 8066009-4 (Version None)
Quarter: 2012Q1

REPORT INFORMATION
  Report Type: 
  Country: None (occurrence: None)
  Receive Date: 20120124
  Receipt Date: 20120117
  Transmission Date: 20120608
  Serious: Yes (Other)
  Sender: FDA-Public Use
  Company Number: US-AMGEN-USASP2012003620

PATIENT
  Age: 54 Year
  Sex: Female
  Weight: 104.31 kg

DRUGS (3)
  1. METHOTREXATE [Concomitant]
     Indication: PSORIASIS
     Dosage: UNK
     Dates: end: 20110801
  2. HUMIRA [Concomitant]
     Indication: PSORIASIS
     Dosage: 40 MG, Q2WK
     Route: 058
     Dates: start: 20110801
  3. ENBREL [Suspect]
     Indication: PSORIASIS
     Dosage: UNK
     Dates: start: 20060101, end: 20110801

REACTIONS (2)
  - PLATELET COUNT DECREASED [None]
  - HEPATIC CIRRHOSIS [None]
